FAERS Safety Report 9782978 (Version 1)
Quarter: 2013Q4

REPORT INFORMATION
  Report Type: Spontaneous
  Country: JP (occurrence: JP)
  Receive Date: 20131226
  Receipt Date: 20131226
  Transmission Date: 20140711
  Serious: Yes (Other)
  Sender: FDA-Public Use
  Company Number: JP-PFIZER INC-2013362896

PATIENT
  Age: 6 Decade
  Sex: Male

DRUGS (1)
  1. GABAPENTIN [Suspect]

REACTIONS (1)
  - Drug-induced liver injury [Unknown]
